FAERS Safety Report 8477815-6 (Version None)
Quarter: 2012Q2

REPORT INFORMATION
  Report Type: 
  Country: None (occurrence: None)
  Receive Date: 20120629
  Receipt Date: 20120626
  Transmission Date: 20120825
  Serious: Yes (Other)
  Sender: FDA-Public Use
  Company Number: GB-PFIZER INC-2012153347

PATIENT
  Age: 64 Year
  Sex: Female

DRUGS (3)
  1. BENDROFLUMETHIAZIDE [Concomitant]
     Indication: HORMONE REPLACEMENT THERAPY
  2. AMLODIPINE BESYLATE [Suspect]
     Dosage: TO BE TAKEN AT 7AM
     Route: 048
     Dates: start: 20120301, end: 20120524
  3. BENDROFLUMETHIAZIDE [Concomitant]
     Indication: BLOOD PRESSURE
     Dosage: STARTED OVER A YEAR AGO
     Route: 048

REACTIONS (4)
  - PRURITUS [None]
  - JOINT SWELLING [None]
  - RASH ERYTHEMATOUS [None]
  - ERYTHEMA [None]
